FAERS Safety Report 19040620 (Version 1)
Quarter: 2021Q1

REPORT INFORMATION
  Report Type: Report from Study
  Country: DE (occurrence: DE)
  Receive Date: 20210322
  Receipt Date: 20210322
  Transmission Date: 20210420
  Serious: Yes (Hospitalization)
  Sender: FDA-Public Use
  Company Number: DE-TAKEDA-DE201724824

PATIENT
  Sex: Female
  Weight: 69 kg

DRUGS (8)
  1. TEDUGLUTIDE [Suspect]
     Active Substance: TEDUGLUTIDE
     Indication: SHORT-BOWEL SYNDROME
     Dosage: 3.5 MILLIGRAM
     Route: 065
     Dates: start: 20161108
  2. TEDUGLUTIDE [Suspect]
     Active Substance: TEDUGLUTIDE
     Indication: SHORT-BOWEL SYNDROME
     Dosage: 3.5 MILLIGRAM
     Route: 065
     Dates: start: 20161108
  3. REVESTIVE [Concomitant]
     Active Substance: TEDUGLUTIDE
     Indication: SHORT-BOWEL SYNDROME
  4. LOCACORTEN VIOFORM [Concomitant]
     Active Substance: CLIOQUINOL\FLUMETHASONE
     Indication: SKIN INFECTION
  5. TEDUGLUTIDE [Suspect]
     Active Substance: TEDUGLUTIDE
     Indication: SHORT-BOWEL SYNDROME
     Dosage: 3.5 MILLIGRAM
     Route: 065
     Dates: start: 20161108
  6. CANDIO?HERMAL PLUS [Concomitant]
     Indication: FUNGAL SKIN INFECTION
  7. TEDUGLUTIDE [Suspect]
     Active Substance: TEDUGLUTIDE
     Indication: SHORT-BOWEL SYNDROME
     Dosage: 3.5 MILLIGRAM
     Route: 065
     Dates: start: 20161108
  8. UREA. [Concomitant]
     Active Substance: UREA
     Indication: DRY SKIN

REACTIONS (1)
  - Intervertebral discitis [Recovered/Resolved]

NARRATIVE: CASE EVENT DATE: 201705
